FAERS Safety Report 7427535-1 (Version None)
Quarter: 2011Q2

REPORT INFORMATION
  Report Type: 
  Country: None (occurrence: None)
  Receive Date: 20110420
  Receipt Date: 20110415
  Transmission Date: 20111010
  Serious: Yes (Life-Threatening, Disabling, Other)
  Sender: FDA-Public Use
  Company Number: US-MERCK-1104USA01071

PATIENT
  Age: 54 Year
  Sex: Male

DRUGS (2)
  1. DIOVAN HCT [Concomitant]
     Route: 065
  2. JANUMET [Suspect]
     Indication: DIABETES MELLITUS
     Route: 048
     Dates: start: 20091222, end: 20110331

REACTIONS (1)
  - RENAL FAILURE [None]
